FAERS Safety Report 8186829-5 (Version None)
Quarter: 2012Q1

REPORT INFORMATION
  Report Type: 
  Country: None (occurrence: None)
  Receive Date: 20120306
  Receipt Date: 20120228
  Transmission Date: 20120608
  Serious: Yes (Disabling, Other)
  Sender: FDA-Public Use
  Company Number: GB-SP-2012-02286

PATIENT
  Sex: Male

DRUGS (7)
  1. FUROSEMIDE [Concomitant]
     Route: 048
  2. FLOMAXTRA XL [Concomitant]
     Route: 048
  3. RAMIPRIL [Concomitant]
     Route: 048
  4. FLUOXETINE HCL [Concomitant]
     Route: 048
  5. BISOPROLOL FUMARATE [Concomitant]
     Route: 048
  6. TRIMETHOPRIM [Concomitant]
     Route: 048
  7. IMMUCYST [Suspect]
     Indication: BLADDER CANCER STAGE 0, WITH CANCER IN SITU
     Route: 065
     Dates: start: 20120208, end: 20120208

REACTIONS (5)
  - MICTURITION URGENCY [None]
  - ARTHRALGIA [None]
  - RASH [None]
  - MYALGIA [None]
  - URGE INCONTINENCE [None]
